FAERS Safety Report 5657746-7 (Version None)
Quarter: 2008Q1

REPORT INFORMATION
  Report Type: 
  Country: None (occurrence: None)
  Receive Date: 20080310
  Receipt Date: 20080304
  Transmission Date: 20080703
  Serious: Yes (Hospitalization)
  Sender: FDA-Public Use
  Company Number: DE-BOEHRINGER INGELHEIM GMBH, GERMANY-2008-DE-01359DE

PATIENT
  Sex: Female

DRUGS (1)
  1. SIFROL 0,088 MG [Suspect]
     Indication: RESTLESS LEGS SYNDROME
     Route: 048

REACTIONS (1)
  - HEPATIC ENZYME INCREASED [None]
